FAERS Safety Report 8545660-9 (Version None)
Quarter: 2012Q3

REPORT INFORMATION
  Report Type: 
  Country: None (occurrence: None)
  Receive Date: 20120727
  Receipt Date: 20120718
  Transmission Date: 20120928
  Serious: Yes (Hospitalization)
  Sender: FDA-Public Use
  Company Number: US-ABBOTT-12P-163-0957879-00

PATIENT
  Sex: Female

DRUGS (6)
  1. HUMIRA [Suspect]
     Route: 058
     Dates: start: 20080101, end: 20090101
  2. VALTREX [Concomitant]
     Dates: start: 20110101
  3. VALTREX [Concomitant]
     Indication: HERPES VIRUS INFECTION
  4. HUMIRA [Suspect]
     Indication: CROHN'S DISEASE
     Route: 058
     Dates: start: 20120401
  5. OXYCODONE HCL [Concomitant]
     Indication: PRODUCT USED FOR UNKNOWN INDICATION
     Dates: start: 20120301
  6. MORPHINE SULFATE [Concomitant]
     Indication: PRODUCT USED FOR UNKNOWN INDICATION

REACTIONS (4)
  - INTESTINAL OBSTRUCTION [None]
  - PRURITUS GENERALISED [None]
  - CROHN'S DISEASE [None]
  - MIGRAINE [None]
